FAERS Safety Report 9290534 (Version 1)
Quarter: 2013Q2

REPORT INFORMATION
  Report Type: Spontaneous
  Country: ES (occurrence: ES)
  Receive Date: 20130515
  Receipt Date: 20130515
  Transmission Date: 20140414
  Serious: Yes (Other)
  Sender: FDA-Public Use
  Company Number: ES-GENZYME-THYM-1003801

PATIENT
  Age: 33 Year
  Sex: Female

DRUGS (1)
  1. THYMOGLOBULINE [Suspect]
     Indication: LUNG TRANSPLANT REJECTION
     Dosage: 200 UNK, QD
     Route: 042
     Dates: start: 20130304, end: 20130306

REACTIONS (3)
  - Erythema [Recovered/Resolved]
  - Flushing [Recovered/Resolved]
  - Sinus tachycardia [Recovered/Resolved]
